FAERS Safety Report 8371999-6 (Version None)
Quarter: 2012Q2

REPORT INFORMATION
  Report Type: 
  Country: None (occurrence: None)
  Receive Date: 20120518
  Receipt Date: 20120504
  Transmission Date: 20120825
  Serious: Yes (Hospitalization)
  Sender: FDA-Public Use
  Company Number: CHPA2012CA010538

PATIENT
  Age: 48 Year
  Sex: Male

DRUGS (3)
  1. HABITROL [Suspect]
     Indication: SMOKING CESSATION THERAPY
     Dosage: 7 MG, QD
     Route: 062
     Dates: start: 20120301
  2. HABITROL [Suspect]
     Dosage: 21 MG, QD
     Route: 062
  3. HABITROL [Suspect]
     Dosage: 14 MG, QD
     Route: 062

REACTIONS (5)
  - FEELING ABNORMAL [None]
  - HAEMORRHAGE [None]
  - BLOOD COUNT ABNORMAL [None]
  - MALAISE [None]
  - HAEMATEMESIS [None]
